FAERS Safety Report 11146623 (Version 1)
Quarter: 2015Q2

REPORT INFORMATION
  Report Type: Spontaneous
  Country: AU (occurrence: AU)
  Receive Date: 20150528
  Receipt Date: 20150528
  Transmission Date: 20150821
  Serious: Yes (Other)
  Sender: FDA-Public Use
  Company Number: PHHY2015AU063126

PATIENT
  Age: 61 Year
  Sex: Female

DRUGS (6)
  1. PREDNISOLONE. [Suspect]
     Active Substance: PREDNISOLONE
     Indication: CUTANEOUS SARCOIDOSIS
     Dosage: 50 MG DAILY
     Route: 048
  2. PREDNISOLONE. [Suspect]
     Active Substance: PREDNISOLONE
     Dosage: 25 MG, UNK
     Route: 048
  3. METHOTREXATE [Concomitant]
     Active Substance: METHOTREXATE
     Indication: CUTANEOUS SARCOIDOSIS
     Dosage: 30 MG PER WEEK
     Route: 065
  4. PLAQUENIL [Concomitant]
     Active Substance: HYDROXYCHLOROQUINE SULFATE
     Indication: CUTANEOUS SARCOIDOSIS
     Dosage: 200 MG, BID
     Route: 065
  5. PLAQUENIL [Concomitant]
     Active Substance: HYDROXYCHLOROQUINE SULFATE
     Dosage: 100 MG DAILY
     Route: 065
  6. METHOTREXATE [Concomitant]
     Active Substance: METHOTREXATE
     Dosage: 20 MG WEEKLY
     Route: 065

REACTIONS (10)
  - Nodule [Recovered/Resolved]
  - Arthralgia [Recovered/Resolved]
  - Anxiety [Unknown]
  - Cutaneous sarcoidosis [Recovered/Resolved]
  - Emotional distress [Recovered/Resolved]
  - Dyspnoea [Recovered/Resolved]
  - Disease progression [Recovering/Resolving]
  - Palpitations [Unknown]
  - Weight increased [Unknown]
  - Scar [Recovered/Resolved]
